FAERS Safety Report 21012084 (Version 1)
Quarter: 2022Q2

REPORT INFORMATION
  Report Type: Spontaneous
  Country: US (occurrence: US)
  Receive Date: 20220627
  Receipt Date: 20220627
  Transmission Date: 20220721
  Serious: Yes (Other)
  Sender: FDA-Public Use
  Company Number: US-BRISTOL-MYERS SQUIBB COMPANY-2022-060349

PATIENT
  Age: 77 Year
  Sex: Male

DRUGS (1)
  1. REVLIMID [Suspect]
     Active Substance: LENALIDOMIDE
     Indication: Anaplastic large cell lymphoma T- and null-cell types
     Route: 048
     Dates: start: 20220516, end: 20220604

REACTIONS (6)
  - Asthenia [Unknown]
  - Confusional state [Unknown]
  - Dizziness [Unknown]
  - Neck pain [Unknown]
  - Erythema [Unknown]
  - Intentional product use issue [Unknown]

NARRATIVE: CASE EVENT DATE: 20220613
